FAERS Safety Report 15948998 (Version 1)
Quarter: 2019Q1

REPORT INFORMATION
  Report Type: Spontaneous
  Country: CA (occurrence: CA)
  Receive Date: 20190211
  Receipt Date: 20190211
  Transmission Date: 20190417
  Serious: Yes (Other)
  Sender: FDA-Public Use
  Company Number: PHHY2019CA030649

PATIENT
  Age: 24 Year
  Sex: Female
  Weight: 110 kg

DRUGS (19)
  1. VANCOMYCIN HYDROCHLORIDE. [Suspect]
     Active Substance: VANCOMYCIN HYDROCHLORIDE
     Indication: PYREXIA
     Dosage: 1.5 G, Q8H
     Route: 042
  2. ACYCLOVIR SODIUM. [Suspect]
     Active Substance: ACYCLOVIR SODIUM
     Indication: PYREXIA
     Dosage: 1 G, Q8H
     Route: 042
  3. DIMENHYDRINATE. [Concomitant]
     Active Substance: DIMENHYDRINATE
     Indication: PRODUCT USED FOR UNKNOWN INDICATION
     Route: 065
  4. HYDROMORPHONE [Concomitant]
     Active Substance: HYDROMORPHONE
     Indication: PRODUCT USED FOR UNKNOWN INDICATION
     Route: 065
  5. VANCOMYCIN HYDROCHLORIDE. [Suspect]
     Active Substance: VANCOMYCIN HYDROCHLORIDE
     Indication: NECK PAIN
  6. ACYCLOVIR SODIUM. [Suspect]
     Active Substance: ACYCLOVIR SODIUM
     Indication: HEADACHE
  7. CEFTRIAXONE SODIUM. [Concomitant]
     Active Substance: CEFTRIAXONE SODIUM
     Indication: PRODUCT USED FOR UNKNOWN INDICATION
     Route: 065
  8. VANCOMYCIN HYDROCHLORIDE. [Suspect]
     Active Substance: VANCOMYCIN HYDROCHLORIDE
     Indication: HEADACHE
  9. ACYCLOVIR SODIUM. [Suspect]
     Active Substance: ACYCLOVIR SODIUM
     Indication: NECK PAIN
  10. IBUPROFEN. [Concomitant]
     Active Substance: IBUPROFEN
     Indication: PRODUCT USED FOR UNKNOWN INDICATION
     Route: 065
  11. NAPROXEN. [Concomitant]
     Active Substance: NAPROXEN
     Indication: PRODUCT USED FOR UNKNOWN INDICATION
     Route: 065
  12. INDOMETHACIN SANDOZ [Suspect]
     Active Substance: INDOMETHACIN
     Indication: HEADACHE
  13. DIPHENHYDRAMINE. [Concomitant]
     Active Substance: DIPHENHYDRAMINE
     Indication: PRODUCT USED FOR UNKNOWN INDICATION
     Route: 065
  14. METOCLOPRAMIDE. [Concomitant]
     Active Substance: METOCLOPRAMIDE
     Indication: PRODUCT USED FOR UNKNOWN INDICATION
     Route: 065
  15. KETOROLAC [Concomitant]
     Active Substance: KETOROLAC\KETOROLAC TROMETHAMINE
     Indication: PRODUCT USED FOR UNKNOWN INDICATION
     Route: 065
  16. INDOMETHACIN SANDOZ [Suspect]
     Active Substance: INDOMETHACIN
     Indication: NECK PAIN
  17. DEXAMETHASONE. [Concomitant]
     Active Substance: DEXAMETHASONE
     Indication: PRODUCT USED FOR UNKNOWN INDICATION
     Route: 065
  18. INDOMETHACIN SANDOZ [Suspect]
     Active Substance: INDOMETHACIN
     Indication: PYREXIA
     Dosage: 100 MG, UNK
     Route: 054
  19. ACETAMINOPHEN. [Concomitant]
     Active Substance: ACETAMINOPHEN
     Indication: PRODUCT USED FOR UNKNOWN INDICATION
     Route: 065

REACTIONS (1)
  - Blood creatinine increased [Recovering/Resolving]
